FAERS Safety Report 8123886-6 (Version None)
Quarter: 2012Q1

REPORT INFORMATION
  Report Type: 
  Country: None (occurrence: None)
  Receive Date: 20120209
  Receipt Date: 20120202
  Transmission Date: 20120608
  Serious: No
  Sender: FDA-Public Use
  Company Number: US-BIOGENIDEC-2012BI001102

PATIENT
  Sex: Female

DRUGS (1)
  1. AVONEX [Suspect]
     Indication: MULTIPLE SCLEROSIS
     Route: 030
     Dates: start: 20111223

REACTIONS (6)
  - HEADACHE [None]
  - FATIGUE [None]
  - CRYING [None]
  - SOMNOLENCE [None]
  - COGNITIVE DISORDER [None]
  - DEPRESSION [None]
